FAERS Safety Report 8433017-0 (Version None)
Quarter: 2012Q2

REPORT INFORMATION
  Report Type: 
  Country: None (occurrence: None)
  Receive Date: 20120613
  Receipt Date: 20120607
  Transmission Date: 20120825
  Serious: Yes (Other)
  Sender: FDA-Public Use
  Company Number: US-ROCHE-1071210

PATIENT
  Sex: Female
  Weight: 33.596 kg

DRUGS (19)
  1. INCIVEK [Suspect]
     Indication: HEPATITIS C
     Route: 048
     Dates: start: 20120511
  2. RIBASPHERE [Suspect]
     Indication: HEPATITIS C
     Dosage: 400/600 MG
     Route: 048
     Dates: start: 20120511
  3. CETIRIZINE [Concomitant]
     Indication: HYPERSENSITIVITY
     Route: 048
  4. OMEPRAZOLE [Concomitant]
     Indication: GASTROOESOPHAGEAL REFLUX DISEASE
  5. MIRALAX [Concomitant]
     Indication: CONSTIPATION
     Dosage: REPORTED AS PEG
     Route: 048
  6. FLUOXETINE [Concomitant]
     Indication: DEPRESSION
     Route: 048
  7. TETRAHYDROZOLINE HYDROCHLORIDE [Concomitant]
     Dosage: REPORTED AS NWI
     Route: 048
  8. FUROSEMIDE [Concomitant]
     Indication: OEDEMA
     Route: 048
  9. METFORMIN HCL [Concomitant]
     Indication: DIABETES MELLITUS
     Route: 048
  10. TRAMADOL HCL [Concomitant]
     Indication: PAIN
     Route: 048
  11. HALOBETASOL [Concomitant]
     Indication: PRURITUS
  12. LACTULOSE [Concomitant]
     Indication: HEPATIC ENCEPHALOPATHY
     Route: 048
  13. NADOLOL [Concomitant]
     Indication: VARICES OESOPHAGEAL
     Route: 048
  14. SPIRONOLACTONE [Concomitant]
     Indication: OEDEMA
     Route: 048
  15. PEGASYS [Suspect]
     Indication: HEPATITIS C
     Route: 058
     Dates: start: 20120511
  16. MILK THISTLE [Concomitant]
     Route: 048
  17. XIFAXAN [Concomitant]
     Indication: HEPATIC ENCEPHALOPATHY
     Route: 048
  18. MAGNESIUM [Concomitant]
     Route: 048
  19. SPIRONOLACTONE [Concomitant]
     Indication: ASCITES

REACTIONS (5)
  - ASTHENIA [None]
  - NAUSEA [None]
  - FATIGUE [None]
  - EPISTAXIS [None]
  - INSOMNIA [None]
